FAERS Safety Report 9982035 (Version 2)
Quarter: 2014Q1

REPORT INFORMATION
  Report Type: Report from Study
  Country: US (occurrence: US)
  Receive Date: 20140307
  Receipt Date: 20140307
  Transmission Date: 20141002
  Serious: No
  Sender: FDA-Public Use
  Company Number: US-ABBVIE-13P-163-1156735-00

PATIENT
  Age: 35 Year
  Sex: Female

DRUGS (8)
  1. HUMIRA [Suspect]
     Indication: CROHN^S DISEASE
     Dates: start: 20131004, end: 20131004
  2. HUMIRA [Suspect]
     Indication: COLITIS ULCERATIVE
     Dates: end: 20131115
  3. PREDNISONE [Concomitant]
     Indication: CROHN^S DISEASE
     Dosage: 20MG DAILY
  4. LIALDA [Concomitant]
     Indication: CROHN^S DISEASE
  5. DICYCLOMINE [Concomitant]
     Indication: CROHN^S DISEASE
  6. PROBIOTICS [Concomitant]
     Indication: SUPPLEMENTATION THERAPY
  7. B12 [Concomitant]
     Indication: VITAMIN SUPPLEMENTATION
  8. D3 [Concomitant]
     Indication: VITAMIN SUPPLEMENTATION
     Dosage: DAILY

REACTIONS (11)
  - Fatigue [Recovered/Resolved]
  - Injection site pain [Recovered/Resolved]
  - Injection site pain [Recovered/Resolved]
  - Injection site pain [Recovered/Resolved]
  - Injection site pain [Recovered/Resolved]
  - Injection site pain [Recovered/Resolved]
  - Fatigue [Recovered/Resolved]
  - Fatigue [Recovering/Resolving]
  - Insomnia [Not Recovered/Not Resolved]
  - Rash erythematous [Recovered/Resolved]
  - Injection site reaction [Not Recovered/Not Resolved]
